FAERS Safety Report 7500780-2 (Version None)
Quarter: 2011Q2

REPORT INFORMATION
  Report Type: 
  Country: None (occurrence: None)
  Receive Date: 20110524
  Receipt Date: 20110516
  Transmission Date: 20111010
  Serious: Yes (Hospitalization, Other)
  Sender: FDA-Public Use
  Company Number: PHHO2010JP02740

PATIENT
  Sex: Male
  Weight: 66 kg

DRUGS (27)
  1. PANCREAZE [Concomitant]
  2. ROCALTROL [Concomitant]
  3. OPSO DAINIPPON [Concomitant]
  4. MUCOSTA [Concomitant]
     Dosage: UNK
     Dates: start: 20100120
  5. ALDACTONE [Concomitant]
  6. PLACEBO [Suspect]
     Indication: PANCREATIC NEUROENDOCRINE TUMOUR
     Dosage: PLACEBO
     Route: 048
     Dates: start: 20090402, end: 20091217
  7. NOVORAPID [Concomitant]
     Indication: DIABETES MELLITUS
  8. PANCREATIN [Concomitant]
  9. RAD001 [Suspect]
     Indication: PANCREATIC NEUROENDOCRINE TUMOUR
     Dosage: 10 MG, DAILY
     Route: 048
     Dates: start: 20091218, end: 20100929
  10. VITANEURIN [Concomitant]
     Indication: ASTHENOPIA
  11. ADETPHOS [Concomitant]
     Indication: ASTHENOPIA
  12. METHYCOBAL [Concomitant]
     Indication: ASTHENOPIA
  13. RAD001 [Suspect]
     Dosage: 10 MG, DAILY
     Route: 048
     Dates: start: 20101006, end: 20110515
  14. SANDOSTATIN LAR [Concomitant]
     Indication: PANCREATIC NEUROENDOCRINE TUMOUR
     Dosage: UNK
     Dates: start: 20080823
  15. LOXOPROFEN [Concomitant]
     Indication: PAIN
  16. SELBEX [Concomitant]
     Indication: GASTRITIS PROPHYLAXIS
  17. HALOPERIDOL [Concomitant]
     Dosage: UNK
     Dates: start: 20100622
  18. ZOMETA [Concomitant]
     Indication: METASTASES TO BONE
     Dosage: UNK
     Dates: start: 20090407
  19. KETOPROFEN [Concomitant]
     Indication: PAIN
  20. TESTOSTERONE ENANTHATE [Concomitant]
  21. BASEN [Concomitant]
     Indication: DIABETES MELLITUS
  22. ZOLPIDEM [Concomitant]
  23. CINAL [Concomitant]
     Indication: ASTHENOPIA
  24. TRYPTANOL [Concomitant]
     Indication: HEADACHE
  25. PENTAZOCINE LACTATE [Concomitant]
  26. CABERGOLINE [Concomitant]
     Dosage: UNK
     Dates: start: 20090627
  27. FENTANYL CITRATE [Concomitant]

REACTIONS (9)
  - METASTASES TO LYMPH NODES [None]
  - SPINAL COMPRESSION FRACTURE [None]
  - METASTASES TO BONE [None]
  - MUSCULOSKELETAL PAIN [None]
  - PAIN [None]
  - ABDOMINAL PAIN [None]
  - DEHYDRATION [None]
  - VOMITING [None]
  - ABDOMINAL PAIN LOWER [None]
